FAERS Safety Report 8582340-8 (Version None)
Quarter: 2012Q3

REPORT INFORMATION
  Report Type: 
  Country: None (occurrence: None)
  Receive Date: 20120809
  Receipt Date: 20120806
  Transmission Date: 20120928
  Serious: Yes (Other)
  Sender: FDA-Public Use
  Company Number: FR-ROCHE-1095770

PATIENT
  Sex: Male

DRUGS (7)
  1. AVASTIN [Suspect]
     Indication: PRODUCT USED FOR UNKNOWN INDICATION
     Dates: start: 20090416, end: 20090507
  2. FLUOROURACIL [Concomitant]
     Route: 065
     Dates: start: 20061219, end: 20080416
  3. FLUOROURACIL [Concomitant]
     Route: 065
     Dates: start: 20090416, end: 20090507
  4. IRINOTECAN HCL [Concomitant]
     Route: 065
     Dates: start: 20090416, end: 20090507
  5. LEUCOVORIN CALCIUM [Concomitant]
     Route: 065
     Dates: start: 20090416, end: 20090507
  6. IRINOTECAN HCL [Concomitant]
     Route: 065
     Dates: start: 20061219, end: 20080416
  7. LEUCOVORIN CALCIUM [Concomitant]
     Route: 065
     Dates: start: 20061219, end: 20080416

REACTIONS (3)
  - ASTHENIA [None]
  - DECREASED APPETITE [None]
  - FRACTURE [None]
